FAERS Safety Report 10419670 (Version 2)
Quarter: 2014Q3

REPORT INFORMATION
  Report Type: Spontaneous
  Country: US (occurrence: None)
  Receive Date: 20140625
  Receipt Date: 20140815
  Transmission Date: 20150326
  Serious: No
  Sender: FDA-Public Use
  Company Number: A-NJ2014-94448

PATIENT
  Age: 74 Year
  Sex: Male

DRUGS (2)
  1. TYVASO (TREPROSTINIL SODIUM) [Concomitant]
  2. OPSUMIT [Suspect]
     Active Substance: MACITENTAN
     Indication: PULMONARY ARTERIAL HYPERTENSION
     Route: 048
     Dates: start: 20140128

REACTIONS (5)
  - Fatigue [None]
  - Bipolar I disorder [None]
  - Depression [None]
  - Arthralgia [None]
  - Headache [None]
